FAERS Safety Report 11519854 (Version 4)
Quarter: 2017Q3

REPORT INFORMATION
  Report Type: Report from Study
  Country: JP (occurrence: JP)
  Receive Date: 20150918
  Receipt Date: 20170926
  Transmission Date: 20171127
  Serious: Yes (Disabling)
  Sender: FDA-Public Use
  Company Number: JP-ROCHE-1636041

PATIENT
  Age: 86 Year
  Sex: Female

DRUGS (6)
  1. TRIAMCINOLONE [Concomitant]
     Active Substance: TRIAMCINOLONE
     Indication: RETINAL VEIN OCCLUSION
     Dosage: UNK
     Route: 065
     Dates: start: 20150624
  2. CRAVIT [Concomitant]
     Active Substance: LEVOFLOXACIN
     Indication: ANTIBIOTIC PROPHYLAXIS
     Dosage: BEFORE AND AFTER LUCENTIS ADMINISTRATION
     Route: 047
     Dates: start: 20150713
  3. RANIBIZUMAB. [Suspect]
     Active Substance: RANIBIZUMAB
     Indication: RETINAL VEIN OCCLUSION
     Route: 050
     Dates: start: 20150713, end: 20150713
  4. RANIBIZUMAB. [Suspect]
     Active Substance: RANIBIZUMAB
     Indication: MACULAR OEDEMA
     Route: 050
  5. S-ADCHNON [Concomitant]
     Indication: MACULAR OEDEMA
     Route: 048
  6. TRIAMCINOLONE [Concomitant]
     Active Substance: TRIAMCINOLONE
     Indication: MACULAR OEDEMA

REACTIONS (3)
  - Visual acuity reduced [Unknown]
  - Macular oedema [Unknown]
  - Retinal artery occlusion [Recovered/Resolved with Sequelae]

NARRATIVE: CASE EVENT DATE: 20150804
